FAERS Safety Report 24944800 (Version 1)
Quarter: 2025Q1

REPORT INFORMATION
  Report Type: Spontaneous
  Country: CA (occurrence: CA)
  Receive Date: 20250208
  Receipt Date: 20250208
  Transmission Date: 20250408
  Serious: Yes (Life-Threatening, Hospitalization)
  Sender: TAKEDA
  Company Number: CA-TAKEDA-2025TUS012436

PATIENT
  Age: 3 Decade
  Sex: Male

DRUGS (40)
  1. HUMAN IMMUNOGLOBULIN G [Suspect]
     Active Substance: HUMAN IMMUNOGLOBULIN G
     Indication: Guillain-Barre syndrome
  2. FENTANYL [Suspect]
     Active Substance: FENTANYL
     Indication: Neuralgia
  3. FENTANYL [Suspect]
     Active Substance: FENTANYL
  4. VENLAFAXINE HYDROCHLORIDE [Suspect]
     Active Substance: VENLAFAXINE HYDROCHLORIDE
     Indication: Neuralgia
  5. VENLAFAXINE HYDROCHLORIDE [Suspect]
     Active Substance: VENLAFAXINE HYDROCHLORIDE
  6. ACETAMINOPHEN [Suspect]
     Active Substance: ACETAMINOPHEN
     Indication: Neuralgia
     Dosage: 2600 MILLIGRAM, QD
  7. ACETAMINOPHEN [Suspect]
     Active Substance: ACETAMINOPHEN
  8. DICLOFENAC [Suspect]
     Active Substance: DICLOFENAC
     Indication: Neuralgia
  9. DILAUDID [Suspect]
     Active Substance: HYDROMORPHONE HYDROCHLORIDE
     Indication: Neuralgia
     Dosage: 30 MILLIGRAM, QD
  10. DILAUDID [Suspect]
     Active Substance: HYDROMORPHONE HYDROCHLORIDE
     Dosage: 7 MILLIGRAM, QD
  11. GABAPENTIN [Suspect]
     Active Substance: GABAPENTIN
     Indication: Neuralgia
  12. GABAPENTIN [Suspect]
     Active Substance: GABAPENTIN
  13. GABAPENTIN [Suspect]
     Active Substance: GABAPENTIN
     Dosage: 300 MILLIGRAM, QD
  14. GABAPENTIN [Suspect]
     Active Substance: GABAPENTIN
     Dosage: 1200 MILLIGRAM, QD
  15. GABAPENTIN [Suspect]
     Active Substance: GABAPENTIN
     Dosage: 1800 MILLIGRAM, QD
  16. GABAPENTIN [Suspect]
     Active Substance: GABAPENTIN
     Dosage: 900 MILLIGRAM, QD
  17. GABAPENTIN [Suspect]
     Active Substance: GABAPENTIN
     Dosage: 3600 MILLIGRAM, QD
  18. HYDROMORPHONE [Suspect]
     Active Substance: HYDROMORPHONE
     Indication: Neuralgia
  19. HYDROMORPHONE HYDROCHLORIDE [Suspect]
     Active Substance: HYDROMORPHONE HYDROCHLORIDE
     Indication: Neuralgia
  20. HYDROMORPHONE HYDROCHLORIDE [Suspect]
     Active Substance: HYDROMORPHONE HYDROCHLORIDE
  21. HYDROMORPHONE HYDROCHLORIDE [Suspect]
     Active Substance: HYDROMORPHONE HYDROCHLORIDE
  22. IBUPROFEN [Suspect]
     Active Substance: IBUPROFEN
     Indication: Neuralgia
     Dosage: 1600 MILLIGRAM, QD
  23. KETAMINE [Suspect]
     Active Substance: KETAMINE
     Indication: Neuralgia
  24. KETAMINE [Suspect]
     Active Substance: KETAMINE
  25. KETAMINE [Suspect]
     Active Substance: KETAMINE
     Dosage: 30 MILLIGRAM, QD
  26. KETAMINE [Suspect]
     Active Substance: KETAMINE
     Dosage: 40 MILLIGRAM, QD
  27. LIDOCAINE HYDROCHLORIDE [Suspect]
     Active Substance: LIDOCAINE HYDROCHLORIDE
     Indication: Neuralgia
  28. LIDOCAINE HYDROCHLORIDE [Suspect]
     Active Substance: LIDOCAINE HYDROCHLORIDE
  29. NABILONE [Suspect]
     Active Substance: NABILONE
     Indication: Neuralgia
  30. NABILONE [Suspect]
     Active Substance: NABILONE
     Dosage: 2 MILLIGRAM, QD
  31. NABILONE [Suspect]
     Active Substance: NABILONE
     Dosage: 6 MILLIGRAM, QD
  32. OLANZAPINE [Suspect]
     Active Substance: OLANZAPINE
     Indication: Neuralgia
     Dosage: 2.5 MILLIGRAM, QD
  33. OLANZAPINE [Suspect]
     Active Substance: OLANZAPINE
  34. OLANZAPINE [Suspect]
     Active Substance: OLANZAPINE
     Dosage: 3 MILLIGRAM, QD
  35. PHENYTOIN [Suspect]
     Active Substance: PHENYTOIN
     Indication: Neuralgia
     Dosage: 1500 MILLIGRAM, QD
  36. PHENYTOIN [Suspect]
     Active Substance: PHENYTOIN
  37. ZOPICLONE [Suspect]
     Active Substance: ZOPICLONE
     Indication: Neuralgia
  38. ZOPICLONE [Suspect]
     Active Substance: ZOPICLONE
  39. FENTANYL [Suspect]
     Active Substance: FENTANYL
     Indication: Neuralgia
  40. ACETAMINOPHEN [Suspect]
     Active Substance: ACETAMINOPHEN
     Indication: Neuralgia
     Dosage: 3900 MILLIGRAM, QD

REACTIONS (4)
  - Inspiratory capacity decreased [Unknown]
  - Drug ineffective [Unknown]
  - Drug ineffective for unapproved indication [Unknown]
  - Off label use [Unknown]
